FAERS Safety Report 5565167-0 (Version None)
Quarter: 2007Q4

REPORT INFORMATION
  Report Type: 
  Country: None (occurrence: None)
  Receive Date: 20071213
  Receipt Date: 20071204
  Transmission Date: 20080405
  Serious: Yes (Other)
  Sender: FDA-Public Use
  Company Number: CHPA2007US13410

PATIENT
  Age: 26 Year
  Sex: Female

DRUGS (2)
  1. TRANSDERM SCOP [Suspect]
     Dosage: 1.5 MG, Q72H PRN UP TO 4/MO, TRANSDERMAL
     Route: 062
  2. TIGAN [Concomitant]

REACTIONS (5)
  - BACK PAIN [None]
  - BLINDNESS [None]
  - MOTION SICKNESS [None]
  - MYDRIASIS [None]
  - VISION BLURRED [None]
